FAERS Safety Report 21113285 (Version 2)
Quarter: 2022Q3

REPORT INFORMATION
  Report Type: Spontaneous
  Country: US (occurrence: US)
  Receive Date: 20220721
  Receipt Date: 20220726
  Transmission Date: 20221026
  Serious: No
  Sender: FDA-Public Use
  Company Number: US-NOVARTISTESTPH-NVSC2022US165270

PATIENT
  Sex: Male

DRUGS (1)
  1. GLEEVEC [Suspect]
     Active Substance: IMATINIB MESYLATE
     Indication: Product used for unknown indication
     Dosage: 400 MG, QD
     Route: 065

REACTIONS (6)
  - Inflammation [Unknown]
  - Pain in extremity [Unknown]
  - Arthralgia [Unknown]
  - Insomnia [Unknown]
  - Pain [Unknown]
  - Musculoskeletal stiffness [Unknown]
